FAERS Safety Report 8826170 (Version 1)
Quarter: 2012Q4

REPORT INFORMATION
  Report Type: 
  Country: CA (occurrence: CA)
  Receive Date: 20121005
  Receipt Date: 20121005
  Transmission Date: 20130627
  Serious: Yes (Life-Threatening, Hospitalization)
  Sender: FDA-Public Use
  Company Number: PHHY2012CA077443

PATIENT
  Age: 46 Year
  Sex: Male

DRUGS (4)
  1. CLOZARIL [Suspect]
     Indication: SCHIZOPHRENIA
     Route: 048
     Dates: start: 20070526
  2. CLOZARIL [Suspect]
     Dosage: 500 mg, BID
     Route: 048
  3. CLOZARIL [Suspect]
     Dosage: 500 mg, QHS
     Route: 048
  4. CLOZARIL [Suspect]
     Dosage: 400 mg, QHS
     Route: 048

REACTIONS (6)
  - Convulsion [Recovered/Resolved]
  - Grand mal convulsion [Recovered/Resolved]
  - Negative thoughts [Recovered/Resolved]
  - Loss of consciousness [Recovered/Resolved]
  - Schizophrenia [Recovered/Resolved]
  - Incorrect dose administered [Unknown]
